FAERS Safety Report 7019246-1 (Version None)
Quarter: 2010Q3

REPORT INFORMATION
  Report Type: 
  Country: None (occurrence: None)
  Receive Date: 20100928
  Receipt Date: 20100722
  Transmission Date: 20110219
  Serious: Yes (Other)
  Sender: FDA-Public Use
  Company Number: US-B.I. PHARMACEUTICALS,INC./RIDGEFIELD-2010-BP-10898PF

PATIENT
  Sex: Female
  Weight: 109.77 kg

DRUGS (10)
  1. SPIRIVA [Suspect]
     Route: 055
  2. LIPITOR [Suspect]
     Indication: BLOOD CHOLESTEROL INCREASED
     Dosage: 10 MG
     Route: 048
  3. LIPITOR [Suspect]
     Dosage: 20 MG
     Route: 048
  4. AZULFIDINE [Suspect]
     Indication: COLITIS
     Route: 048
  5. ELAVIL [Concomitant]
     Indication: PAIN
     Route: 048
  6. TICLID [Concomitant]
     Indication: ANTICOAGULANT THERAPY
     Dosage: 500 MG
     Route: 048
  7. SYNTHROID [Concomitant]
     Indication: THYROID DISORDER
     Dosage: 2.5 MG
     Route: 048
  8. SYNTHROID [Concomitant]
     Dosage: 1.75 MG
     Route: 048
  9. NORVASC [Concomitant]
     Indication: HYPERTENSION
     Route: 048
  10. ARICEPT [Concomitant]
     Route: 048

REACTIONS (6)
  - ARTHROPATHY [None]
  - COLITIS [None]
  - RASH [None]
  - SKIN DISCOLOURATION [None]
  - SKIN DISORDER [None]
  - SYSTEMIC LUPUS ERYTHEMATOSUS [None]
